FAERS Safety Report 4892739-9 (Version None)
Quarter: 2006Q1

REPORT INFORMATION
  Report Type: 
  Country: None (occurrence: None)
  Receive Date: 20060123
  Receipt Date: 20060123
  Transmission Date: 20060701
  Serious: Yes (Other)
  Sender: FDA-Public Use
  Company Number: None

PATIENT
  Sex: Female

DRUGS (1)
  1. HEXABRIX [Suspect]
     Indication: HYSTEROSALPINGOGRAM
     Dosage: 20 CC ONCE INTRAUTERI
     Route: 015
     Dates: start: 20030114

REACTIONS (3)
  - GENERALISED ERYTHEMA [None]
  - POST PROCEDURAL COMPLICATION [None]
  - PRURITUS [None]
